FAERS Safety Report 12297021 (Version 1)
Quarter: 2016Q2

REPORT INFORMATION
  Report Type: Spontaneous
  Country: US (occurrence: US)
  Receive Date: 20160422
  Receipt Date: 20160422
  Transmission Date: 20160815
  Serious: No
  Sender: FDA-Public Use
  Company Number: US-FRESENIUS KABI-FK201602031

PATIENT
  Age: 59 Year
  Sex: Male
  Weight: 93 kg

DRUGS (3)
  1. NAROPIN [Suspect]
     Active Substance: ROPIVACAINE HYDROCHLORIDE
     Indication: NERVE BLOCK
     Route: 042
     Dates: start: 20160413, end: 20160413
  2. EPINEPHRINE. [Suspect]
     Active Substance: EPINEPHRINE
     Indication: GENERAL ANAESTHESIA
     Route: 042
     Dates: start: 20160413, end: 20160413
  3. DECADRON [Suspect]
     Active Substance: DEXAMETHASONE
     Indication: GENERAL ANAESTHESIA
     Route: 042
     Dates: start: 20160413, end: 20160413

REACTIONS (1)
  - Drug ineffective [Unknown]

NARRATIVE: CASE EVENT DATE: 20160413
